FAERS Safety Report 9648560 (Version 2)
Quarter: 2014Q1

REPORT INFORMATION
  Report Type: Report from Study
  Country: US (occurrence: US)
  Receive Date: 20131028
  Receipt Date: 20140213
  Transmission Date: 20141002
  Serious: No
  Sender: FDA-Public Use
  Company Number: US-B.I. PHARMACEUTICALS,INC./RIDGEFIELD-2013-BI-34140BI

PATIENT
  Sex: Female

DRUGS (1)
  1. GILOTRIF [Suspect]
     Indication: METASTASES TO LUNG
     Dosage: 40 MG
     Route: 048
     Dates: start: 20130901, end: 20131101

REACTIONS (5)
  - Disease progression [Unknown]
  - Diarrhoea [Unknown]
  - Epistaxis [Unknown]
  - Oral pain [Unknown]
  - Rhinorrhoea [Unknown]
